FAERS Safety Report 23167009 (Version 1)
Quarter: 2023Q4

REPORT INFORMATION
  Report Type: Spontaneous
  Country: US (occurrence: None)
  Receive Date: 20231109
  Receipt Date: 20231109
  Transmission Date: 20240109
  Serious: Yes (Hospitalization)
  Sender: FDA-Public Use
  Company Number: None

PATIENT
  Age: 5 Year
  Sex: Female

DRUGS (3)
  1. MYCOPHENOLATE MOFETIL [Suspect]
     Active Substance: MYCOPHENOLATE MOFETIL
     Indication: Heart transplant
     Dosage: FREQUENCY : TWICE A DAY;?
  2. EVEROLIMUS [Concomitant]
     Active Substance: EVEROLIMUS
  3. LEVETIRACETA SOL [Concomitant]

REACTIONS (1)
  - Pneumonectomy [None]

NARRATIVE: CASE EVENT DATE: 20231026
